FAERS Safety Report 9848227 (Version 1)
Quarter: 2014Q1

REPORT INFORMATION
  Report Type: Spontaneous
  Country: US (occurrence: None)
  Receive Date: 20140127
  Receipt Date: 20140127
  Transmission Date: 20141002
  Serious: Yes (Other)
  Sender: FDA-Public Use
  Company Number: None

PATIENT
  Age: 29 Year
  Sex: Female
  Weight: 130.64 kg

DRUGS (2)
  1. AMPHETAMINE SALT ER [Suspect]
     Indication: ATTENTION DEFICIT/HYPERACTIVITY DISORDER
     Dosage: 30 MG 30 MORNING BY MOUTH
     Route: 048
     Dates: start: 20131225, end: 20140112
  2. ADDERALL XR [Concomitant]

REACTIONS (3)
  - Product physical issue [None]
  - Product quality issue [None]
  - Depression [None]
